FAERS Safety Report 18882180 (Version 1)
Quarter: 2021Q1

REPORT INFORMATION
  Report Type: Spontaneous
  Country: US (occurrence: US)
  Receive Date: 20210211
  Receipt Date: 20210211
  Transmission Date: 20210420
  Serious: No
  Sender: FDA-Public Use
  Company Number: US-VERICEL-US-VCEL-20-003043

PATIENT
  Sex: Female

DRUGS (2)
  1. MACI [Suspect]
     Active Substance: AUTOLOGOUS CULTURED CHONDROCYTES\SUS SCROFA COLLAGEN
     Dosage: 1 DOSAGE FORM, SINGLE
     Route: 050
     Dates: start: 20190926
  2. MACI [Suspect]
     Active Substance: AUTOLOGOUS CULTURED CHONDROCYTES\SUS SCROFA COLLAGEN
     Dosage: 1 DOSAGE FORM, SINGLE
     Route: 050
     Dates: start: 20190521

REACTIONS (1)
  - Cartilage injury [Unknown]
